FAERS Safety Report 7630353-2 (Version None)
Quarter: 2011Q3

REPORT INFORMATION
  Report Type: 
  Country: None (occurrence: None)
  Receive Date: 20110722
  Receipt Date: 20110701
  Transmission Date: 20111222
  Serious: Yes (Hospitalization)
  Sender: FDA-Public Use
  Company Number: US-GLAXOSMITHKLINE-A0739949A

PATIENT
  Age: 62 Year
  Sex: Male
  Weight: 104.1 kg

DRUGS (6)
  1. ZOCOR [Concomitant]
  2. HYDROCHLOROTHIAZIDE [Concomitant]
  3. AVANDIA [Suspect]
     Indication: TYPE 2 DIABETES MELLITUS
     Dosage: 4MG TWICE PER DAY
     Route: 048
     Dates: start: 20040518, end: 20070619
  4. METFORMIN HCL [Concomitant]
  5. ZETIA [Concomitant]
  6. ATENOLOL [Concomitant]

REACTIONS (4)
  - ACUTE CORONARY SYNDROME [None]
  - CORONARY ARTERY DISEASE [None]
  - MYOCARDIAL INFARCTION [None]
  - CARDIAC FAILURE CONGESTIVE [None]
